FAERS Safety Report 8249354-9 (Version None)
Quarter: 2012Q1

REPORT INFORMATION
  Report Type: 
  Country: None (occurrence: None)
  Receive Date: 20120316
  Receipt Date: 20120312
  Transmission Date: 20120608
  Serious: Yes (Other)
  Sender: FDA-Public Use
  Company Number: 2012031062

PATIENT
  Age: 7 Year
  Sex: Male
  Weight: 33.1126 kg

DRUGS (14)
  1. ADVAIR DISKUS 100/50 [Concomitant]
  2. OXYGEN (OXYGEN) [Concomitant]
  3. XOPENEX [Concomitant]
  4. CARBATROL ER (CARBAMAZEPINE) [Concomitant]
  5. ZYRTEC [Concomitant]
  6. HIZENTRA [Suspect]
  7. ACETAMINOPHEN [Concomitant]
  8. PREVACID [Concomitant]
  9. HIZENTRA [Suspect]
     Indication: IMMUNODEFICIENCY
     Dosage: SEE IMAGE
     Route: 058
     Dates: start: 20111027
  10. HIZENTRA [Suspect]
     Indication: CONGENITAL PNEUMONIA
     Dosage: SEE IMAGE
     Route: 058
     Dates: start: 20111027
  11. HIZENTRA [Suspect]
     Indication: LIVE BIRTH
     Dosage: SEE IMAGE
     Route: 058
     Dates: start: 20111027
  12. HIZENTRA [Suspect]
     Indication: IMMUNODEFICIENCY
     Dosage: SEE IMAGE
     Route: 058
     Dates: start: 20111027
  13. HIZENTRA [Suspect]
     Indication: CONGENITAL PNEUMONIA
     Dosage: SEE IMAGE
     Route: 058
     Dates: start: 20111027
  14. HIZENTRA [Suspect]
     Indication: LIVE BIRTH
     Dosage: SEE IMAGE
     Route: 058
     Dates: start: 20111027

REACTIONS (4)
  - MATERNAL EXPOSURE DURING PREGNANCY [None]
  - PNEUMONIA [None]
  - UPPER RESPIRATORY TRACT INFECTION [None]
  - OFF LABEL USE [None]
